FAERS Safety Report 8400751-8 (Version None)
Quarter: 2012Q2

REPORT INFORMATION
  Report Type: 
  Country: None (occurrence: None)
  Receive Date: 20120531
  Receipt Date: 20120529
  Transmission Date: 20120825
  Serious: Yes (Other)
  Sender: FDA-Public Use
  Company Number: GB-MERCK-1107GBR00043

PATIENT
  Sex: Female

DRUGS (1)
  1. JANUVIA [Suspect]
     Route: 048

REACTIONS (3)
  - DRUG ADMINISTRATION ERROR [None]
  - CEREBROVASCULAR ACCIDENT [None]
  - INCORRECT DRUG DOSAGE FORM ADMINISTERED [None]
